FAERS Safety Report 21454534 (Version 1)
Quarter: 2022Q4

REPORT INFORMATION
  Report Type: Spontaneous
  Country: US (occurrence: US)
  Receive Date: 20221013
  Receipt Date: 20221013
  Transmission Date: 20230113
  Serious: Yes (Other)
  Sender: FDA-Public Use
  Company Number: US-BRISTOL-MYERS SQUIBB COMPANY-2022-119823

PATIENT
  Age: 66 Year
  Sex: Male

DRUGS (1)
  1. REVLIMID [Suspect]
     Active Substance: LENALIDOMIDE
     Indication: Plasma cell myeloma
     Dosage: TAKE 1 CAPSULE (25 MG) BY MOUTH ONCE DAILY ON DAYS 1-14 OF EACH 21 DAY CYCLE. TAKE WHOLE WITHWATER,
     Route: 048
     Dates: start: 20220115

REACTIONS (2)
  - Arterial occlusive disease [Recovering/Resolving]
  - Off label use [Unknown]
